FAERS Safety Report 8103143-4 (Version None)
Quarter: 2012Q1

REPORT INFORMATION
  Report Type: 
  Country: None (occurrence: None)
  Receive Date: 20120201
  Receipt Date: 20120125
  Transmission Date: 20120608
  Serious: Yes (Other)
  Sender: FDA-Public Use
  Company Number: US-BAYER-2012-009402

PATIENT
  Age: 52 Year
  Sex: Female
  Weight: 73.469 kg

DRUGS (4)
  1. DROSPIRENONE AND ETHINYL ESTRADIOL [Suspect]
     Dosage: UNK
     Dates: start: 20040319, end: 20040905
  2. YAZ [Suspect]
     Dosage: UNK
     Dates: start: 20040319, end: 20040905
  3. COUMADIN [Concomitant]
     Dosage: UNK
     Dates: start: 20050301
  4. YASMIN [Suspect]
     Dosage: UNK
     Route: 048
     Dates: start: 20040319, end: 20040905

REACTIONS (6)
  - NAUSEA [None]
  - VOMITING [None]
  - DIZZINESS [None]
  - PAIN IN EXTREMITY [None]
  - OEDEMA PERIPHERAL [None]
  - DEEP VEIN THROMBOSIS [None]
